FAERS Safety Report 14471389 (Version 1)
Quarter: 2018Q1

REPORT INFORMATION
  Report Type: Spontaneous
  Country: NL (occurrence: NL)
  Receive Date: 20180131
  Receipt Date: 20180131
  Transmission Date: 20180509
  Serious: Yes (Hospitalization)
  Sender: FDA-Public Use
  Company Number: NL-TEVA-2018-NL-850004

PATIENT
  Age: 40 Year
  Sex: Male
  Weight: 104 kg

DRUGS (6)
  1. DULOXETINE 30 [Concomitant]
     Dosage: 2 PER DAY
  2. OXYCODON CAPSULE, 5 MG (MILLIGRAM) [Interacting]
     Active Substance: OXYCODONE
     Indication: PROCEDURAL PAIN
     Dosage: IF NECESSARY 4 X DAILY
     Route: 065
     Dates: start: 20171008, end: 20171107
  3. OXYCODON RET 10 MG [Suspect]
     Active Substance: OXYCODONE
     Indication: PROCEDURAL PAIN
     Dosage: IF NECESSARY RETARD 10 MG 2 X DAILY
     Route: 065
     Dates: start: 20171008, end: 20171107
  4. GABAPENTINE CAPSULE, 100 MG (MILLIGRAM) [Interacting]
     Active Substance: GABAPENTIN
     Indication: NEUROPATHY PERIPHERAL
     Dosage: 3 X DAILY 2 CAPSULES
     Route: 065
     Dates: start: 20160101
  5. METYLFENIDAAT 10 [Concomitant]
     Dosage: 3X DAILY
  6. PROPRANOL 40 [Concomitant]
     Dosage: 3X DAILY

REACTIONS (5)
  - Muscle spasms [Recovering/Resolving]
  - Confusional state [Recovering/Resolving]
  - Drug interaction [Unknown]
  - Visual impairment [Recovering/Resolving]
  - Trismus [Recovering/Resolving]

NARRATIVE: CASE EVENT DATE: 20171106
